FAERS Safety Report 24710932 (Version 1)
Quarter: 2024Q4

REPORT INFORMATION
  Report Type: Spontaneous
  Country: DE (occurrence: DE)
  Receive Date: 20241209
  Receipt Date: 20241209
  Transmission Date: 20250114
  Serious: Yes (Other)
  Sender: AMGEN
  Company Number: DE-AMGEN-DEUSP2024236801

PATIENT
  Age: 69 Year
  Sex: Male

DRUGS (1)
  1. PROLIA [Suspect]
     Active Substance: DENOSUMAB
     Indication: Osteoporosis postmenopausal
     Dosage: 6 MILLIGRAM, Q6MO
     Route: 065

REACTIONS (4)
  - Osteonecrosis of jaw [Unknown]
  - Cerebrovascular accident [Unknown]
  - Epilepsy [Unknown]
  - Off label use [Unknown]
